FAERS Safety Report 8217790-2 (Version None)
Quarter: 2012Q1

REPORT INFORMATION
  Report Type: 
  Country: None (occurrence: None)
  Receive Date: 20120319
  Receipt Date: 20120309
  Transmission Date: 20120608
  Serious: Yes (Other)
  Sender: FDA-Public Use
  Company Number: ES-JNJFOC-20120306187

PATIENT
  Age: 49 Year
  Sex: Female
  Weight: 59.8 kg

DRUGS (6)
  1. PAROXETINE HCL [Interacting]
     Route: 048
     Dates: start: 20110101, end: 20110519
  2. ALPRAZOLAM [Interacting]
     Indication: ANXIETY
     Route: 048
     Dates: start: 20110101
  3. PAROXETINE HCL [Interacting]
     Indication: DEPRESSION
     Route: 048
     Dates: start: 20110519
  4. NOCTAMID [Interacting]
     Indication: INSOMNIA
     Route: 048
     Dates: start: 20110101
  5. INVEGA [Suspect]
     Indication: SUICIDE ATTEMPT
     Route: 048
     Dates: start: 20101203
  6. LORAZEPAM [Interacting]
     Indication: ANXIETY
     Route: 048
     Dates: start: 20110101

REACTIONS (2)
  - DRUG INTERACTION [None]
  - WEIGHT INCREASED [None]
